FAERS Safety Report 14315897 (Version 2)
Quarter: 2018Q1

REPORT INFORMATION
  Report Type: Spontaneous
  Country: US (occurrence: US)
  Receive Date: 20171221
  Receipt Date: 20180117
  Transmission Date: 20180509
  Serious: No
  Sender: FDA-Public Use
  Company Number: US-B.I. PHARMACEUTICALS,INC./RIDGEFIELD-2017-BI-067045

PATIENT
  Sex: Female

DRUGS (4)
  1. INCRUSE ELLIPTA [Concomitant]
     Active Substance: UMECLIDINIUM BROMIDE
     Indication: ASTHMA
     Dosage: 1 PUFF ONCE A DAY;  FORMULATION: INHALATION SPRAY;
     Route: 055
     Dates: start: 201706
  2. COMBIVENT [Suspect]
     Active Substance: ALBUTEROL SULFATE\IPRATROPIUM BROMIDE
     Dosage: 2INHALATION BID,AS NEEDED;STRNGTH:20MCG/100MCG;FRM:INHALATION SPRAY,ACTION TAKEN DOSE NOT CHANGED
     Route: 055
     Dates: start: 2012
  3. ADVAIR HFA [Concomitant]
     Active Substance: FLUTICASONE PROPIONATE\SALMETEROL XINAFOATE
     Indication: ASTHMA
     Dosage: 1 INHALATION EVERY 12 HOURS;  FORMULATION: INHALATION SPRAY;
     Route: 055
  4. COMBIVENT [Suspect]
     Active Substance: ALBUTEROL SULFATE\IPRATROPIUM BROMIDE
     Indication: ASTHMA
     Dosage: USING MORE THAN 6 INHALATIONS OF COMBIVENT RESPIMAT A DAY
     Route: 055
     Dates: start: 2011

REACTIONS (3)
  - Device issue [Unknown]
  - Inappropriate schedule of drug administration [Unknown]
  - Off label use [Unknown]

NARRATIVE: CASE EVENT DATE: 2011
